FAERS Safety Report 5050395-3 (Version None)
Quarter: 2006Q3

REPORT INFORMATION
  Report Type: 
  Country: None (occurrence: None)
  Receive Date: 20060707
  Receipt Date: 20060626
  Transmission Date: 20061208
  Serious: Yes (Hospitalization, Other)
  Sender: FDA-Public Use
  Company Number: CERZ-10592

PATIENT
  Age: 20 Month
  Sex: Female
  Weight: 10 kg

DRUGS (12)
  1. CEREZYME [Suspect]
     Indication: GAUCHER'S DISEASE
     Dosage: 120 U/KG Q2WKS IV
     Route: 042
     Dates: start: 20050930
  2. CEREZYME [Suspect]
  3. CEREZYME [Suspect]
  4. CEREZYME [Suspect]
  5. CEREZYME [Suspect]
  6. CEREZYME [Suspect]
  7. CEREZYME [Suspect]
     Indication: GAUCHER'S DISEASE
     Dosage: 1000 UNITS Q2WKS IV
     Route: 042
     Dates: start: 20040908, end: 20050915
  8. CEREZYME [Suspect]
     Indication: GAUCHER'S DISEASE
     Dosage: 800 UNITS Q2WKS IV
     Route: 042
     Dates: start: 20030813, end: 20040824
  9. CLOBAZAM [Concomitant]
  10. AMBROXOL HYDROCHLORIDE [Concomitant]
  11. CARBOCYSTEINE [Concomitant]
  12. TPN [Concomitant]

REACTIONS (14)
  - BACTERIAL INFECTION [None]
  - BRONCHITIS ACUTE [None]
  - DEHYDRATION [None]
  - DIFFICULT TO WEAN FROM VENTILATOR [None]
  - EPILEPSY [None]
  - GASTROINTESTINAL HAEMORRHAGE [None]
  - HYPERTONIA [None]
  - LIVER FUNCTION TEST ABNORMAL [None]
  - OPISTHOTONUS [None]
  - PNEUMONIA [None]
  - RESPIRATORY DISORDER [None]
  - RESPIRATORY FAILURE [None]
  - SLEEP DISORDER [None]
  - VIRAL INFECTION [None]
